FAERS Safety Report 9246119 (Version 4)
Quarter: 2013Q4

REPORT INFORMATION
  Report Type: Report from Study
  Country: DE (occurrence: DE)
  Receive Date: 20130422
  Receipt Date: 20131007
  Transmission Date: 20140711
  Serious: Yes (Other)
  Sender: FDA-Public Use
  Company Number: DE-ACTELION-A-CH2013-81844

PATIENT
  Age: 45 Year
  Sex: Female
  Weight: 77.9 kg

DRUGS (2)
  1. ZAVESCA [Suspect]
     Indication: NIEMANN-PICK DISEASE
     Dosage: 200 MG, TID
     Route: 048
  2. ZAVESCA [Suspect]
     Dosage: 100 MG, QD
     Route: 048
     Dates: start: 20110525

REACTIONS (2)
  - Convulsion [Not Recovered/Not Resolved]
  - Concomitant disease aggravated [Not Recovered/Not Resolved]
